FAERS Safety Report 14200141 (Version 1)
Quarter: 2017Q4

REPORT INFORMATION
  Report Type: Spontaneous
  Country: US (occurrence: US)
  Receive Date: 20171117
  Receipt Date: 20171117
  Transmission Date: 20180321
  Serious: Yes (Other)
  Sender: FDA-Public Use
  Company Number: US-PFIZER INC-2017495009

PATIENT
  Sex: Female

DRUGS (1)
  1. IBRANCE [Suspect]
     Active Substance: PALBOCICLIB
     Indication: BREAST CANCER METASTATIC
     Dosage: UNK
     Dates: start: 20150514, end: 20170914

REACTIONS (5)
  - Rash [Unknown]
  - Tremor [Unknown]
  - Transient ischaemic attack [Unknown]
  - Contusion [Unknown]
  - White blood cell count decreased [Unknown]
